FAERS Safety Report 19897187 (Version 1)
Quarter: 2021Q3

REPORT INFORMATION
  Report Type: Report from Study
  Country: None (occurrence: US)
  Receive Date: 20210930
  Receipt Date: 20210930
  Transmission Date: 20211014
  Serious: Yes (Hospitalization)
  Sender: FDA-Public Use
  Company Number: US-ABBVIE-21K-163-4098181-00

PATIENT
  Sex: Female

DRUGS (2)
  1. MODERNA COVID?19 VACCINE [Concomitant]
     Active Substance: CX-024414
     Indication: COVID-19 IMMUNISATION
  2. HUMIRA [Suspect]
     Active Substance: ADALIMUMAB
     Indication: UVEITIS
     Dosage: CF
     Route: 058

REACTIONS (3)
  - Fatigue [Unknown]
  - SARS-CoV-2 test positive [Recovering/Resolving]
  - Cough [Unknown]

NARRATIVE: CASE EVENT DATE: 2021
